FAERS Safety Report 17607108 (Version 1)
Quarter: 2020Q1

REPORT INFORMATION
  Report Type: Spontaneous
  Country: DK (occurrence: DK)
  Receive Date: 20200331
  Receipt Date: 20200331
  Transmission Date: 20200409
  Serious: Yes (Other)
  Sender: FDA-Public Use
  Company Number: DK-LEO PHARMA-328945

PATIENT
  Age: 50 Year
  Sex: Male

DRUGS (2)
  1. PICATO [Suspect]
     Active Substance: INGENOL MEBUTATE
     Indication: ACTINIC KERATOSIS
     Dosage: 1 APPLICATION FOR 2 RESPECTIVE 3 DAYS, STRENGTH: 500 AND 150 MG/G.
     Route: 003
     Dates: start: 20171103, end: 201907
  2. PICATO [Suspect]
     Active Substance: INGENOL MEBUTATE
     Dosage: 1 APPLICATION FOR 2 RESPECTIVE 3 DAYS, STRENGTH: 500 AND 150 MG/G.
     Route: 003
     Dates: start: 20171103, end: 201907

REACTIONS (2)
  - Squamous cell carcinoma of skin [Unknown]
  - Inappropriate schedule of product administration [Unknown]

NARRATIVE: CASE EVENT DATE: 2018
